FAERS Safety Report 15122974 (Version 2)
Quarter: 2018Q3

REPORT INFORMATION
  Report Type: Not Available
  Country: US (occurrence: US)
  Receive Date: 20180709
  Receipt Date: 20180726
  Transmission Date: 20181010
  Serious: Yes (Hospitalization)
  Sender: FDA-Public Use
  Company Number: US-NEUROCRINE BIOSCIENCES INC.-2018NBI02005

PATIENT
  Sex: Male

DRUGS (7)
  1. INGREZZA [Suspect]
     Active Substance: VALBENAZINE
     Indication: TARDIVE DYSKINESIA
     Route: 048
     Dates: start: 20170821, end: 20170827
  2. BENZTROPINE. [Concomitant]
     Active Substance: BENZTROPINE
  3. RISPERIDONE. [Concomitant]
     Active Substance: RISPERIDONE
  4. INGREZZA [Suspect]
     Active Substance: VALBENAZINE
     Route: 048
     Dates: start: 20170828, end: 2018
  5. MELOXICAM. [Concomitant]
     Active Substance: MELOXICAM
  6. TRAZODONE [Concomitant]
     Active Substance: TRAZODONE HYDROCHLORIDE
  7. PRAVASTATIN. [Concomitant]
     Active Substance: PRAVASTATIN

REACTIONS (4)
  - Head injury [Unknown]
  - Fall [Not Recovered/Not Resolved]
  - Inappropriate schedule of drug administration [Unknown]
  - Schizophrenia [Not Recovered/Not Resolved]
